FAERS Safety Report 11097085 (Version 1)
Quarter: 2015Q2

REPORT INFORMATION
  Report Type: Spontaneous
  Country: US (occurrence: US)
  Receive Date: 20150507
  Receipt Date: 20150507
  Transmission Date: 20150821
  Serious: No
  Sender: FDA-Public Use
  Company Number: US-BAYER-2015-198183

PATIENT
  Age: 87 Year
  Sex: Female
  Weight: 68 kg

DRUGS (9)
  1. AMLODIPINE BESYLATE. [Concomitant]
     Active Substance: AMLODIPINE BESYLATE
  2. MICARDIS [Concomitant]
     Active Substance: TELMISARTAN
  3. DEXILANT [Concomitant]
     Active Substance: DEXLANSOPRAZOLE
  4. LOZOL [Concomitant]
     Active Substance: INDAPAMIDE
  5. XARELTO [Concomitant]
     Active Substance: RIVAROXABAN
  6. CLARITIN [Suspect]
     Active Substance: LORATADINE
     Indication: SEASONAL ALLERGY
     Dosage: 1 DF, QD
     Route: 048
     Dates: start: 20150429
  7. AMOXICILLIN. [Concomitant]
     Active Substance: AMOXICILLIN
  8. CLONIDINE. [Concomitant]
     Active Substance: CLONIDINE
  9. METOPROLOL TARTRATE. [Concomitant]
     Active Substance: METOPROLOL TARTRATE

REACTIONS (1)
  - Incorrect dose administered [Unknown]

NARRATIVE: CASE EVENT DATE: 20150506
